FAERS Safety Report 4323795-4 (Version None)
Quarter: 2004Q1

REPORT INFORMATION
  Report Type: 
  Country: None (occurrence: None)
  Receive Date: 20040323
  Receipt Date: 20040309
  Transmission Date: 20041129
  Serious: Yes (Other)
  Sender: FDA-Public Use
  Company Number: A0501876A

PATIENT
  Age: 53 Year
  Sex: Male

DRUGS (1)
  1. NICODERM CQ [Suspect]
     Indication: EX-SMOKER
     Dosage: 14 MG / TRANSDERMAL
     Route: 062
     Dates: start: 20040105

REACTIONS (1)
  - BLOOD PRESSURE INCREASED [None]
